FAERS Safety Report 4876401-4 (Version None)
Quarter: 2005Q4

REPORT INFORMATION
  Report Type: 
  Country: None (occurrence: None)
  Receive Date: 20051206
  Receipt Date: 20051017
  Transmission Date: 20060501
  Serious: No
  Sender: FDA-Public Use
  Company Number: USA0510111130

PATIENT
  Age: 43 Year
  Sex: Female

DRUGS (2)
  1. CYMBALTA [Suspect]
     Indication: NEUROPATHY
     Dosage: 60 MG
     Dates: start: 20051004
  2. NEURONTIN [Concomitant]

REACTIONS (14)
  - ACTIVITIES OF DAILY LIVING IMPAIRED [None]
  - DEPRESSED MOOD [None]
  - FEAR [None]
  - FEELING ABNORMAL [None]
  - FEELING JITTERY [None]
  - MALAISE [None]
  - MORBID THOUGHTS [None]
  - NERVOUSNESS [None]
  - PARANOIA [None]
  - PSYCHIATRIC SYMPTOM [None]
  - SOMNOLENCE [None]
  - STOMACH DISCOMFORT [None]
  - TEARFULNESS [None]
  - TREMOR [None]
